FAERS Safety Report 5524780-7 (Version None)
Quarter: 2007Q4

REPORT INFORMATION
  Report Type: 
  Country: None (occurrence: None)
  Receive Date: 20071116
  Receipt Date: 20071107
  Transmission Date: 20080405
  Serious: Yes (Hospitalization)
  Sender: FDA-Public Use
  Company Number: 2007-167106-NL

PATIENT
  Age: 32 Year
  Sex: Female

DRUGS (6)
  1. ROCURONIUM BROMIDE [Suspect]
     Dosage: 25 MG ONCE
     Dates: start: 20070219, end: 20070219
  2. SEVOFLURANE [Suspect]
     Dates: start: 20070219, end: 20070219
  3. FENTANYL [Suspect]
     Dosage: 100 MG ONCE
     Dates: start: 20070219, end: 20070219
  4. TRAMADOL HCL [Suspect]
     Dosage: 200 G ONCE
     Dates: start: 20070219, end: 20070219
  5. DEXAMETHASONE [Concomitant]
  6. PROPOFOL [Concomitant]

REACTIONS (4)
  - ASTHENIA [None]
  - MUSCLE TWITCHING [None]
  - MYOCLONUS [None]
  - POST PROCEDURAL COMPLICATION [None]
